FAERS Safety Report 7559053-4 (Version None)
Quarter: 2011Q2

REPORT INFORMATION
  Report Type: 
  Country: None (occurrence: None)
  Receive Date: 20110621
  Receipt Date: 20110608
  Transmission Date: 20111010
  Serious: Yes (Hospitalization)
  Sender: FDA-Public Use
  Company Number: FR-KINGPHARMUSA00001-K201100692

PATIENT
  Age: 87 Year
  Sex: Female

DRUGS (10)
  1. CITALOPRAM HYDROBROMIDE [Concomitant]
  2. HYDROCHLOROTHIAZIDE [Suspect]
     Indication: HYPERTENSION
     Dosage: 25 MG, QD
     Dates: start: 20100721, end: 20100805
  3. LORAZEPAM [Concomitant]
  4. ASPIRIN [Concomitant]
  5. BISOPROLOL FUMARATE [Concomitant]
  6. LANSOPRAZOLE [Concomitant]
  7. AMLODIPINE BESYLATE [Concomitant]
  8. ALTACE [Suspect]
     Indication: HYPERTENSION
     Dosage: 5 MG, QD
     Route: 048
     Dates: start: 20100721, end: 20100805
  9. PERIDON [Concomitant]
  10. GLIBOMET [Concomitant]

REACTIONS (3)
  - HYPONATRAEMIA [None]
  - ELECTROLYTE IMBALANCE [None]
  - HYPOKALAEMIA [None]
